FAERS Safety Report 14987815 (Version 1)
Quarter: 2018Q2

REPORT INFORMATION
  Report Type: Spontaneous
  Country: CN (occurrence: CN)
  Receive Date: 20180608
  Receipt Date: 20180608
  Transmission Date: 20180711
  Serious: Yes (Other)
  Sender: FDA-Public Use
  Company Number: CN-ASTELLAS-2018US025408

PATIENT
  Age: 15 Year
  Sex: Male

DRUGS (5)
  1. GANCICLOVIR. [Suspect]
     Active Substance: GANCICLOVIR
     Indication: PRODUCT USED FOR UNKNOWN INDICATION
     Dosage: 0.25 G, EVERY 12 HOURS (ON THE DAY OF AND AFTER THE OPERATION)
     Route: 042
  2. PREDNISONE. [Suspect]
     Active Substance: PREDNISONE
     Indication: HEART TRANSPLANT
     Route: 048
  3. TACROLIMUS. [Suspect]
     Active Substance: TACROLIMUS
     Indication: HEART TRANSPLANT
     Route: 048
     Dates: start: 20151113, end: 20170523
  4. MYCOPHENOLATE MOFETIL. [Suspect]
     Active Substance: MYCOPHENOLATE MOFETIL
     Indication: HEART TRANSPLANT
     Dosage: 0.5 G, EVERY 12 HOURS
     Route: 048
  5. VANCOMYCIN [Suspect]
     Active Substance: VANCOMYCIN
     Indication: PRODUCT USED FOR UNKNOWN INDICATION
     Dosage: 500 MG, EVERY 8 HOURS (1 WEEK AFTER SURGERY)
     Route: 042

REACTIONS (11)
  - Pseudomonas infection [Recovered/Resolved]
  - Acute kidney injury [Recovered/Resolved]
  - Anuria [Recovered/Resolved]
  - Cardiac failure [Recovered/Resolved]
  - Decubitus ulcer [Recovered/Resolved]
  - Anaemia [Unknown]
  - Septic shock [Recovering/Resolving]
  - Chest pain [Unknown]
  - Hypotension [Recovered/Resolved]
  - Oliguria [Recovered/Resolved]
  - Tachycardia [Unknown]

NARRATIVE: CASE EVENT DATE: 201511
